FAERS Safety Report 9679251 (Version 3)
Quarter: 2013Q4

REPORT INFORMATION
  Report Type: Spontaneous
  Country: DE (occurrence: DE)
  Receive Date: 20131109
  Receipt Date: 20131126
  Transmission Date: 20140711
  Serious: Yes (Death, Other)
  Sender: FDA-Public Use
  Company Number: DE-ROCHE-1300934

PATIENT
  Sex: 0

DRUGS (4)
  1. NEULASTA [Suspect]
     Indication: PRODUCT USED FOR UNKNOWN INDICATION
     Route: 065
  2. EPIRUBICIN [Concomitant]
  3. TAXOL [Concomitant]
  4. CYCLOPHOSPHAMIDE [Concomitant]

REACTIONS (3)
  - Death [Fatal]
  - Acute myeloid leukaemia [Unknown]
  - Metastases to bone [Unknown]
